FAERS Safety Report 9916607 (Version 1)
Quarter: 2014Q1

REPORT INFORMATION
  Report Type: Spontaneous
  Country: US (occurrence: US)
  Receive Date: 20140221
  Receipt Date: 20140221
  Transmission Date: 20141002
  Serious: Yes (Death)
  Sender: FDA-Public Use
  Company Number: US-INCYTE CORPORATION-2014IN000443

PATIENT
  Sex: Male
  Weight: 58.96 kg

DRUGS (1)
  1. JAKAFI [Suspect]
     Dosage: 15 MG, UNK
     Route: 048
     Dates: start: 20130930

REACTIONS (1)
  - Death [Fatal]
